FAERS Safety Report 13412314 (Version 2)
Quarter: 2018Q1

REPORT INFORMATION
  Report Type: Spontaneous
  Country: US (occurrence: US)
  Receive Date: 20170406
  Receipt Date: 20180118
  Transmission Date: 20180508
  Serious: No
  Sender: FDA-Public Use
  Company Number: US-JNJFOC-20170308318

PATIENT
  Sex: Male

DRUGS (4)
  1. RISPERIDONE. [Suspect]
     Active Substance: RISPERIDONE
     Indication: ABNORMAL BEHAVIOUR
     Dosage: VARYING DOSE OF 0.5MG, 1MG AND 1.5MG
     Route: 048
     Dates: start: 19981031, end: 19990930
  2. RISPERDAL [Suspect]
     Active Substance: RISPERIDONE
     Indication: ATTENTION DEFICIT/HYPERACTIVITY DISORDER
     Dosage: VARYING DOSE OF 0.5MG AND 1MG
     Route: 048
     Dates: start: 19980723, end: 19981030
  3. RISPERDAL [Suspect]
     Active Substance: RISPERIDONE
     Indication: ABNORMAL BEHAVIOUR
     Dosage: VARYING DOSE OF 0.5MG AND 1MG
     Route: 048
     Dates: start: 19980723, end: 19981030
  4. RISPERIDONE. [Suspect]
     Active Substance: RISPERIDONE
     Indication: ATTENTION DEFICIT/HYPERACTIVITY DISORDER
     Dosage: VARYING DOSE OF 0.5MG, 1MG AND 1.5MG
     Route: 048
     Dates: start: 19981031, end: 19990930

REACTIONS (2)
  - Gynaecomastia [Unknown]
  - Emotional disorder [Unknown]
